FAERS Safety Report 5733927-9 (Version None)
Quarter: 2008Q2

REPORT INFORMATION
  Report Type: 
  Country: None (occurrence: None)
  Receive Date: 20080509
  Receipt Date: 20080507
  Transmission Date: 20081010
  Serious: Yes (Other)
  Sender: FDA-Public Use
  Company Number: GR-BOEHRINGER INGELHEIM GMBH, GERMANY-2008-DE-02708GD

PATIENT
  Age: 78 Year
  Sex: Male

DRUGS (2)
  1. CLONIDINE [Suspect]
     Indication: NERVE BLOCK
  2. ROPIVACAINE [Suspect]
     Indication: NERVE BLOCK
     Dosage: 28 ML (0.5 %)

REACTIONS (4)
  - DIAPHRAGMATIC PARALYSIS [None]
  - RESPIRATORY DISORDER [None]
  - TACHYCARDIA [None]
  - TACHYPNOEA [None]
